FAERS Safety Report 5757746-2 (Version None)
Quarter: 2008Q2

REPORT INFORMATION
  Report Type: 
  Country: None (occurrence: None)
  Receive Date: 20080529
  Receipt Date: 20080514
  Transmission Date: 20081010
  Serious: Yes (Other)
  Sender: FDA-Public Use
  Company Number: 2008EU000872

PATIENT
  Age: 43 Year
  Sex: Male
  Weight: 80 kg

DRUGS (1)
  1. PROTOPIC [Suspect]
     Indication: DERMATITIS ATOPIC
     Dosage: 0.1%, /D, TOPICAL
     Route: 061
     Dates: start: 20080401, end: 20080415

REACTIONS (4)
  - HERPES VIRUS INFECTION [None]
  - LYMPHADENOPATHY [None]
  - MALAISE [None]
  - ONYCHOMYCOSIS [None]
